FAERS Safety Report 9970513 (Version 1)
Quarter: 2014Q1

REPORT INFORMATION
  Report Type: Report from Study
  Country: US (occurrence: US)
  Receive Date: 20140306
  Receipt Date: 20140306
  Transmission Date: 20141002
  Serious: No
  Sender: FDA-Public Use
  Company Number: US-ABBVIE-13P-163-1150555-00

PATIENT
  Age: 19 Year
  Sex: Female
  Weight: 43.58 kg

DRUGS (7)
  1. HUMIRA [Suspect]
     Indication: CROHN^S DISEASE
     Dosage: FOUR INJECTION LOADING DOSE OF 40 MG
     Route: 058
     Dates: start: 20130916, end: 20130916
  2. HUMIRA [Suspect]
     Route: 058
  3. TRAMADOL [Concomitant]
     Indication: PAIN
  4. TRAMADOL [Concomitant]
     Indication: CROHN^S DISEASE
  5. ZOFRAN [Concomitant]
     Indication: NAUSEA
  6. ZOFRAN [Concomitant]
     Indication: CROHN^S DISEASE
  7. PANTOPRAZOLE [Concomitant]
     Indication: GASTROOESOPHAGEAL REFLUX DISEASE

REACTIONS (2)
  - Throat tightness [Recovering/Resolving]
  - Injection site pain [Recovered/Resolved]
